FAERS Safety Report 15033657 (Version 1)
Quarter: 2018Q2

REPORT INFORMATION
  Report Type: Report from Study
  Country: US (occurrence: US)
  Receive Date: 20180619
  Receipt Date: 20180619
  Transmission Date: 20180711
  Serious: Yes (Hospitalization)
  Sender: FDA-Public Use
  Company Number: US-AMGEN-USASL2016012550

PATIENT
  Age: 57 Year
  Sex: Male

DRUGS (5)
  1. CLOLAR [Concomitant]
     Active Substance: CLOFARABINE
     Dosage: 66 MG, UNK
  2. VINCRISTINE                        /00078802/ [Concomitant]
     Active Substance: VINCRISTINE
     Dosage: 2 MG, UNK
  3. CYTARABINE. [Concomitant]
     Active Substance: CYTARABINE
     Dosage: 4400 MG, UNK
  4. BLINCYTO [Suspect]
     Active Substance: BLINATUMOMAB
     Indication: ACUTE LYMPHOCYTIC LEUKAEMIA
     Dosage: 28 MUG, UNK
     Route: 065
     Dates: start: 20160123, end: 20160129
  5. METHOTREXATE. [Concomitant]
     Active Substance: METHOTREXATE
     Dosage: 12 MG, UNK

REACTIONS (2)
  - Drug ineffective [Unknown]
  - Pain in extremity [Recovered/Resolved]

NARRATIVE: CASE EVENT DATE: 20160129
